FAERS Safety Report 14578385 (Version 4)
Quarter: 2018Q4

REPORT INFORMATION
  Report Type: Spontaneous
  Country: US (occurrence: US)
  Receive Date: 20180227
  Receipt Date: 20181207
  Transmission Date: 20190204
  Serious: Yes (Hospitalization)
  Sender: FDA-Public Use
  Company Number: US-ASTRAZENECA-2018SE22072

PATIENT
  Age: 913 Month
  Sex: Male
  Weight: 70.3 kg

DRUGS (12)
  1. BRILINTA [Suspect]
     Active Substance: TICAGRELOR
     Indication: STENT PLACEMENT
     Route: 048
     Dates: start: 20150330
  2. METOPROLOL SUCCINATE. [Suspect]
     Active Substance: METOPROLOL SUCCINATE
     Indication: HEART RATE INCREASED
     Route: 048
     Dates: start: 2016
  3. ASPIRIN. [Concomitant]
     Active Substance: ASPIRIN
     Indication: SUPPLEMENTATION THERAPY
     Route: 048
     Dates: start: 2015
  4. METOPROLOL SUCCINATE. [Suspect]
     Active Substance: METOPROLOL SUCCINATE
     Indication: BLOOD PRESSURE MEASUREMENT
     Route: 048
     Dates: start: 2016
  5. FINASTERIDE. [Concomitant]
     Active Substance: FINASTERIDE
     Indication: PROSTATOMEGALY
     Route: 048
     Dates: start: 2010
  6. GABAPENTIN. [Concomitant]
     Active Substance: GABAPENTIN
     Indication: NEUROPATHY PERIPHERAL
     Route: 048
     Dates: start: 2017
  7. BRILINTA [Suspect]
     Active Substance: TICAGRELOR
     Indication: STENT PLACEMENT
     Route: 048
     Dates: end: 20180211
  8. VITAMIN D [Concomitant]
     Active Substance: CHOLECALCIFEROL
  9. FIBERCON [Concomitant]
     Active Substance: CALCIUM POLYCARBOPHIL
  10. MULTI VITAMIN [Concomitant]
     Active Substance: VITAMINS
  11. NITRO [Concomitant]
     Active Substance: NITROGLYCERIN
  12. PROAIR HFA [Concomitant]
     Active Substance: ALBUTEROL SULFATE
     Indication: NON-CARDIAC CHEST PAIN
     Dates: start: 2016

REACTIONS (11)
  - Blood pressure abnormal [Recovered/Resolved]
  - Haemorrhage urinary tract [Unknown]
  - Dizziness [Unknown]
  - Hypertension [Recovered/Resolved]
  - Chromaturia [Recovered/Resolved]
  - Prostatic haemorrhage [Unknown]
  - Off label use [Not Recovered/Not Resolved]
  - Chest pain [Not Recovered/Not Resolved]
  - Urinary tract infection [Unknown]
  - Weight increased [Unknown]
  - Intentional product use issue [Unknown]

NARRATIVE: CASE EVENT DATE: 201601
